FAERS Safety Report 13369461 (Version 1)
Quarter: 2017Q1

REPORT INFORMATION
  Report Type: Spontaneous
  Country: US (occurrence: US)
  Receive Date: 20170324
  Receipt Date: 20170324
  Transmission Date: 20170429
  Serious: Yes (Hospitalization, Other)
  Sender: FDA-Public Use
  Company Number: US-GLAXOSMITHKLINE-US2017GSK041341

PATIENT
  Age: 16 Year
  Sex: Male

DRUGS (2)
  1. PAROXETINE. [Concomitant]
     Active Substance: PAROXETINE
  2. LAMOTRIGINE. [Suspect]
     Active Substance: LAMOTRIGINE
     Indication: PRODUCT USED FOR UNKNOWN INDICATION
     Dosage: 5 DOSES OF 300MG LAMOTRIGINE

REACTIONS (12)
  - Dyskinesia [Recovered/Resolved]
  - Mental status changes [Recovered/Resolved]
  - Slow response to stimuli [Recovered/Resolved]
  - Speech disorder [Recovered/Resolved]
  - Ataxia [Recovered/Resolved]
  - Tachycardia [Recovered/Resolved]
  - Drug level increased [Recovered/Resolved]
  - Encephalopathy [Recovered/Resolved]
  - Dysarthria [Recovered/Resolved]
  - Accidental overdose [Recovered/Resolved]
  - Chorea [Recovered/Resolved]
  - Toxicity to various agents [Recovered/Resolved]
